FAERS Safety Report 25040901 (Version 2)
Quarter: 2025Q3

REPORT INFORMATION
  Report Type: Report from Study
  Country: US (occurrence: US)
  Receive Date: 20250305
  Receipt Date: 20250809
  Transmission Date: 20251020
  Serious: Yes (Other)
  Sender: ALEXION PHARMACEUTICALS
  Company Number: US-AstraZeneca-CH-00816908A

PATIENT
  Sex: Female

DRUGS (2)
  1. OSIMERTINIB [Suspect]
     Active Substance: OSIMERTINIB
     Indication: Lung carcinoma cell type unspecified stage 0
     Dosage: 80 MILLIGRAM, QD
  2. Other antihistamines for systemic use [Concomitant]

REACTIONS (13)
  - Thrombosis [Unknown]
  - Swelling [Recovering/Resolving]
  - Burning sensation [Recovering/Resolving]
  - Pruritus [Recovering/Resolving]
  - Rash macular [Recovering/Resolving]
  - Rash [Recovering/Resolving]
  - Clumsiness [Unknown]
  - Fall [Unknown]
  - Skin discolouration [Unknown]
  - Headache [Unknown]
  - Dyspnoea [Unknown]
  - Fatigue [Unknown]
  - Peripheral swelling [Unknown]
